FAERS Safety Report 11390783 (Version 1)
Quarter: 2015Q3

REPORT INFORMATION
  Report Type: Spontaneous
  Country: US (occurrence: None)
  Receive Date: 20150814
  Receipt Date: 20150814
  Transmission Date: 20151125
  Serious: Yes (Hospitalization)
  Sender: FDA-Public Use
  Company Number: None

PATIENT
  Age: 50 Year
  Sex: Male
  Weight: 137 kg

DRUGS (7)
  1. JANUVIA [Suspect]
     Active Substance: SITAGLIPTIN PHOSPHATE
     Indication: TYPE 2 DIABETES MELLITUS
     Route: 048
     Dates: start: 20150303, end: 20150322
  2. MULTIVITAMIN [Concomitant]
     Active Substance: VITAMINS
  3. METFORMIN [Concomitant]
     Active Substance: METFORMIN HYDROCHLORIDE
  4. LISINOPRIL. [Concomitant]
     Active Substance: LISINOPRIL
  5. HYDROCHLOROTHIAZIDE. [Concomitant]
     Active Substance: HYDROCHLOROTHIAZIDE
  6. GABAPENTIN. [Concomitant]
     Active Substance: GABAPENTIN
  7. PRAVASTATIN [Concomitant]
     Active Substance: PRAVASTATIN\PRAVASTATIN SODIUM

REACTIONS (17)
  - Nausea [None]
  - Acute kidney injury [None]
  - Toxicity to various agents [None]
  - Bradycardia [None]
  - Cardiac arrest [None]
  - Hypoxia [None]
  - Lipase increased [None]
  - Abdominal pain upper [None]
  - Paraesthesia [None]
  - Contrast media reaction [None]
  - Pancreatic disorder [None]
  - Hypoaesthesia [None]
  - Hyperhidrosis [None]
  - Peripancreatic fluid collection [None]
  - Dialysis [None]
  - Ventricular fibrillation [None]
  - Blood potassium increased [None]

NARRATIVE: CASE EVENT DATE: 20150322
